FAERS Safety Report 8916572 (Version 20)
Quarter: 2016Q4

REPORT INFORMATION
  Report Type: Spontaneous
  Country: CA (occurrence: CA)
  Receive Date: 20121120
  Receipt Date: 20161219
  Transmission Date: 20170207
  Serious: Yes (Life-Threatening, Hospitalization, Other)
  Sender: FDA-Public Use
  Company Number: CA-ROCHE-GNE312381

PATIENT
  Age: 53 Year
  Sex: Female
  Weight: 88 kg

DRUGS (18)
  1. XOLAIR [Suspect]
     Active Substance: OMALIZUMAB
     Route: 058
     Dates: start: 20161110
  2. SALBUTAMOL [Concomitant]
     Active Substance: ALBUTEROL
     Indication: PRODUCT USED FOR UNKNOWN INDICATION
     Route: 065
  3. XOLAIR [Suspect]
     Active Substance: OMALIZUMAB
     Indication: ASTHMA
     Dosage: VIAL
     Route: 058
     Dates: start: 20100624
  4. XOLAIR [Suspect]
     Active Substance: OMALIZUMAB
     Route: 058
     Dates: start: 20140805
  5. PREDNISONE. [Suspect]
     Active Substance: PREDNISONE
     Indication: ASTHMA
     Route: 065
     Dates: start: 20150205
  6. PREDNISONE. [Suspect]
     Active Substance: PREDNISONE
     Indication: LOWER RESPIRATORY TRACT INFECTION
  7. XOLAIR [Suspect]
     Active Substance: OMALIZUMAB
     Route: 058
     Dates: start: 20160324
  8. PREDNISONE. [Suspect]
     Active Substance: PREDNISONE
     Indication: PNEUMONIA
  9. PULMICORT TURBUHALER [Concomitant]
     Active Substance: BUDESONIDE
     Indication: PRODUCT USED FOR UNKNOWN INDICATION
     Route: 065
  10. ADVAIR HFA [Concomitant]
     Active Substance: FLUTICASONE PROPIONATE\SALMETEROL XINAFOATE
     Indication: PRODUCT USED FOR UNKNOWN INDICATION
     Route: 065
  11. XOLAIR [Suspect]
     Active Substance: OMALIZUMAB
     Route: 058
     Dates: start: 20140408
  12. XOLAIR [Suspect]
     Active Substance: OMALIZUMAB
     Route: 058
     Dates: start: 20141223, end: 20150205
  13. XOLAIR [Suspect]
     Active Substance: OMALIZUMAB
     Dosage: RIGHT ARM
     Route: 058
  14. XOLAIR [Suspect]
     Active Substance: OMALIZUMAB
     Indication: PNEUMONIA
     Route: 058
     Dates: start: 20131210
  15. XOLAIR [Suspect]
     Active Substance: OMALIZUMAB
     Route: 058
     Dates: start: 20161114
  16. TYLENOL [Concomitant]
     Active Substance: ACETAMINOPHEN
     Indication: PYREXIA
  17. XOLAIR [Suspect]
     Active Substance: OMALIZUMAB
     Route: 058
  18. PREDNISONE. [Concomitant]
     Active Substance: PREDNISONE

REACTIONS (32)
  - Vomiting [Unknown]
  - Arrhythmia [Unknown]
  - Productive cough [Unknown]
  - Sinus congestion [Recovered/Resolved]
  - Diarrhoea [Recovering/Resolving]
  - Weight decreased [Unknown]
  - Fluid retention [Unknown]
  - Upper respiratory tract infection [Recovered/Resolved]
  - Lower respiratory tract infection [Unknown]
  - Syncope [Unknown]
  - Haematoma [Unknown]
  - Pneumonia [Unknown]
  - Heart rate irregular [Unknown]
  - Blood pressure increased [Unknown]
  - Infection [Unknown]
  - Pain in jaw [Unknown]
  - Pulmonary congestion [Unknown]
  - Dizziness [Unknown]
  - Weight increased [Unknown]
  - Inappropriate schedule of drug administration [Unknown]
  - Device occlusion [Unknown]
  - Cardiomegaly [Unknown]
  - Malaise [Unknown]
  - Oxygen saturation decreased [Unknown]
  - Nausea [Unknown]
  - Pulmonary hypertension [Unknown]
  - Pneumonia [Recovering/Resolving]
  - Asthma [Recovering/Resolving]
  - Lung infection [Recovering/Resolving]
  - Gastric infection [Unknown]
  - Viral infection [Unknown]
  - Expired product administered [Unknown]

NARRATIVE: CASE EVENT DATE: 201104
